FAERS Safety Report 7366552-7 (Version None)
Quarter: 2011Q1

REPORT INFORMATION
  Report Type: 
  Country: None (occurrence: None)
  Receive Date: 20110322
  Receipt Date: 20110309
  Transmission Date: 20110831
  Serious: Yes (Other)
  Sender: FDA-Public Use
  Company Number: ES-JNJFOC-20110300214

PATIENT
  Sex: Female

DRUGS (1)
  1. REMICADE [Suspect]
     Indication: SPONDYLITIS
     Route: 042

REACTIONS (1)
  - BREAST CANCER [None]
